FAERS Safety Report 6193550-1 (Version None)
Quarter: 2009Q2

REPORT INFORMATION
  Report Type: 
  Country: None (occurrence: None)
  Receive Date: 20090518
  Receipt Date: 20090423
  Transmission Date: 20091009
  Serious: Yes (Hospitalization)
  Sender: FDA-Public Use
  Company Number: US-MERCK-0904USA04334

PATIENT
  Age: 76 Year
  Sex: Male

DRUGS (3)
  1. IVOMEC [Suspect]
     Indication: DRUG ADMINISTRATION ERROR
     Route: 048
     Dates: start: 20090423, end: 20090423
  2. GLYBURIDE [Concomitant]
     Route: 065
  3. LISINOPRIL [Concomitant]
     Route: 065

REACTIONS (12)
  - ABDOMINAL PAIN [None]
  - ACCIDENTAL EXPOSURE [None]
  - ATAXIA [None]
  - BLINDNESS [None]
  - DIABETIC COMPLICATION [None]
  - DIZZINESS [None]
  - HYPERGLYCAEMIA [None]
  - HYPOTENSION [None]
  - PNEUMONIA [None]
  - SOMNOLENCE [None]
  - VISION BLURRED [None]
  - VOMITING [None]
